FAERS Safety Report 10191103 (Version 1)
Quarter: 2014Q2

REPORT INFORMATION
  Report Type: Spontaneous
  Country: IT (occurrence: IT)
  Receive Date: 20140523
  Receipt Date: 20140523
  Transmission Date: 20141212
  Serious: Yes (Other)
  Sender: FDA-Public Use
  Company Number: IT-ELI_LILLY_AND_COMPANY-IT201405005676

PATIENT
  Age: 38 Year
  Sex: Female

DRUGS (6)
  1. CYMBALTA [Suspect]
     Indication: PRODUCT USED FOR UNKNOWN INDICATION
     Dosage: 60 MG, EACH EVENING
     Route: 065
     Dates: start: 201404, end: 20140515
  2. TAPENTADOL [Suspect]
     Indication: PRODUCT USED FOR UNKNOWN INDICATION
     Dosage: UNK, UNKNOWN
     Route: 065
  3. LUCEN                              /01479302/ [Concomitant]
     Dosage: 40 MG, UNKNOWN
     Route: 065
  4. CONTRAMAL [Concomitant]
     Dosage: 60 GTT, EACH MORNING
     Route: 065
  5. CONTRAMAL [Concomitant]
     Dosage: 50 GTT, UNKNOWN
     Route: 065
  6. XANAX [Concomitant]
     Dosage: 7 GTT, PRN
     Route: 065

REACTIONS (6)
  - Intermittent claudication [Unknown]
  - Hallucination [Unknown]
  - Gait disturbance [Recovered/Resolved]
  - Back pain [Unknown]
  - Arthralgia [Recovered/Resolved]
  - Back pain [Recovered/Resolved]
